FAERS Safety Report 20098986 (Version 1)
Quarter: 2021Q4

REPORT INFORMATION
  Report Type: Spontaneous
  Country: JP (occurrence: JP)
  Receive Date: 20211122
  Receipt Date: 20211122
  Transmission Date: 20220303
  Serious: Yes (Other)
  Sender: FDA-Public Use
  Company Number: JP-PFIZER INC-202101568618

PATIENT
  Age: 62 Year
  Sex: Female
  Weight: 60.7 kg

DRUGS (2)
  1. IDAMYCIN [Suspect]
     Active Substance: IDARUBICIN HYDROCHLORIDE
     Dosage: 12 MG
  2. CYTARABINE [Suspect]
     Active Substance: CYTARABINE
     Dosage: 160 MG

REACTIONS (4)
  - Toxic epidermal necrolysis [Unknown]
  - Stevens-Johnson syndrome [Unknown]
  - Drug eruption [Unknown]
  - Oral disorder [Unknown]
